FAERS Safety Report 9994799 (Version 1)
Quarter: 2014Q1

REPORT INFORMATION
  Report Type: Spontaneous
  Country: US (occurrence: None)
  Receive Date: 20140307
  Receipt Date: 20140307
  Transmission Date: 20141002
  Serious: Yes (Other)
  Sender: FDA-Public Use
  Company Number: None

PATIENT
  Age: 49 Year
  Sex: Female
  Weight: 65.32 kg

DRUGS (1)
  1. BUPROPION HYDROCHLORIDE [Suspect]
     Indication: ANTIDEPRESSANT THERAPY
     Dosage: 1 PILL ONCE DAILY?
     Dates: start: 20131227, end: 20140306

REACTIONS (3)
  - Anger [None]
  - Crying [None]
  - Suicidal ideation [None]
